FAERS Safety Report 24922016 (Version 1)
Quarter: 2025Q1

REPORT INFORMATION
  Report Type: Spontaneous
  Country: US (occurrence: None)
  Receive Date: 20250204
  Receipt Date: 20250204
  Transmission Date: 20250409
  Serious: Yes (Hospitalization)
  Sender: FDA-CTU
  Company Number: None

PATIENT
  Age: 31 Year
  Sex: Female
  Weight: 306 kg

DRUGS (7)
  1. CYCLOPHOSPHAMIDE [Suspect]
     Active Substance: CYCLOPHOSPHAMIDE
     Dates: end: 20230602
  2. CYTARABINE [Suspect]
     Active Substance: CYTARABINE
     Dates: end: 20230602
  3. SPRYCEL [Suspect]
     Active Substance: DASATINIB
     Dates: end: 20230412
  4. DOXORUBICIN HYDROCHLORIDE [Suspect]
     Active Substance: DOXORUBICIN HYDROCHLORIDE
     Dates: end: 20230602
  5. METHOTREXATE [Suspect]
     Active Substance: METHOTREXATE
     Dates: end: 20230501
  6. VINCRISTINE SULFATE [Suspect]
     Active Substance: VINCRISTINE SULFATE
     Dates: end: 20230602
  7. DEXAMETHASONE [Suspect]
     Active Substance: DEXAMETHASONE
     Dates: end: 20230602

REACTIONS (8)
  - Malaise [None]
  - Fatigue [None]
  - Pyrexia [None]
  - Oropharyngeal pain [None]
  - Dyspnoea exertional [None]
  - Syncope [None]
  - Herpes simplex [None]
  - Ovarian cyst [None]

NARRATIVE: CASE EVENT DATE: 20230511
